FAERS Safety Report 10078888 (Version 2)
Quarter: 2014Q2

REPORT INFORMATION
  Report Type: Spontaneous
  Country: JP (occurrence: None)
  Receive Date: 20140411
  Receipt Date: 20140424
  Transmission Date: 20141212
  Serious: Yes (Other)
  Sender: FDA-Public Use
  Company Number: JP-015148

PATIENT
  Sex: 0

DRUGS (2)
  1. DESMOPRESSIN [Suspect]
     Indication: DIABETES INSIPIDUS
     Route: 064
  2. INSULIN [Concomitant]

REACTIONS (4)
  - Foetal exposure during pregnancy [None]
  - Foetal growth restriction [None]
  - Premature baby [None]
  - Maternal drugs affecting foetus [None]
